FAERS Safety Report 9093035 (Version 1)
Quarter: 2013Q1

REPORT INFORMATION
  Report Type: Spontaneous
  Country: US (occurrence: US)
  Receive Date: 20130201
  Receipt Date: 20130201
  Transmission Date: 20140127
  Serious: Yes (Other)
  Sender: FDA-Public Use
  Company Number: US-ABBOTT-13P-163-1042740-00

PATIENT
  Age: 77 Year
  Sex: Male

DRUGS (1)
  1. ANDROGEL [Suspect]
     Indication: PRODUCT USED FOR UNKNOWN INDICATION

REACTIONS (7)
  - Stevens-Johnson syndrome [Not Recovered/Not Resolved]
  - Erythema multiforme [Unknown]
  - Photosensitivity reaction [Unknown]
  - Rash vesicular [Unknown]
  - Porokeratosis [Unknown]
  - Rash morbilliform [Unknown]
  - Rash [Not Recovered/Not Resolved]
